FAERS Safety Report 8074416-9 (Version None)
Quarter: 2012Q1

REPORT INFORMATION
  Report Type: 
  Country: None (occurrence: None)
  Receive Date: 20120126
  Receipt Date: 20120118
  Transmission Date: 20120608
  Serious: Yes (Other)
  Sender: FDA-Public Use
  Company Number: FR-GLAXOSMITHKLINE-B0772496A

PATIENT
  Sex: Female

DRUGS (7)
  1. FOLIC ACID [Concomitant]
     Indication: IRON DEFICIENCY
     Dates: start: 20110523
  2. NORGESTIMATE AND ETHINYL ESTRADIOL [Concomitant]
     Indication: MENORRHAGIA
     Dates: start: 20110926
  3. SURGESTONE [Concomitant]
     Indication: GENITAL HAEMORRHAGE
     Dates: start: 20110718, end: 20110926
  4. PROMACTA [Suspect]
     Indication: IDIOPATHIC THROMBOCYTOPENIC PURPURA
     Dosage: 50MG PER DAY
     Route: 048
     Dates: start: 20110103, end: 20111114
  5. VENOFER [Concomitant]
     Dates: start: 20110526
  6. DESOGESTREL AND ETHINYL ESTRADIOL [Concomitant]
     Indication: MENORRHAGIA
     Dates: start: 20110603, end: 20110718
  7. FEROGRAD [Concomitant]
     Indication: IRON DEFICIENCY
     Dates: start: 20110523

REACTIONS (3)
  - TREATMENT NONCOMPLIANCE [None]
  - PALPITATIONS [None]
  - TACHYCARDIA [None]
